FAERS Safety Report 8011211-0 (Version None)
Quarter: 2011Q4

REPORT INFORMATION
  Report Type: 
  Country: None (occurrence: None)
  Receive Date: 20111222
  Receipt Date: 20111216
  Transmission Date: 20120403
  Serious: Yes (Other)
  Sender: FDA-Public Use
  Company Number: 1046595

PATIENT
  Age: 74 Year
  Sex: Male
  Weight: 30.6178 kg

DRUGS (8)
  1. MOTILIUM [Concomitant]
  2. LORAZEPAM [Concomitant]
  3. FLUOROURACIL [Suspect]
     Indication: METASTASIS
     Dosage: 100/4300  INTERVAL 14 DAYS IN ALL12CYCLES
  4. LEUCOVORIN CALCIUM [Suspect]
     Indication: METASTASIS
     Dosage: 700, INTERVAL 14 DAYS, IN ALL 12 CYCLES
     Dates: start: 20081231
  5. EMPERAL [Concomitant]
  6. ONDANSETRON [Concomitant]
  7. PREDNISOLONE [Concomitant]
  8. OXALIPLATIN [Suspect]
     Indication: METASTASIS
     Dosage: 150MG FIRST 4 TIMES, 115MG NEXT 7 TIMES, AND 0 MG IN 12TH CYCLE, INTERVAL 14 DAYS, IN ALL 12 CYCLES
     Dates: start: 20081231

REACTIONS (4)
  - BALANCE DISORDER [None]
  - HYPOAESTHESIA [None]
  - COORDINATION ABNORMAL [None]
  - MOTOR DYSFUNCTION [None]
